FAERS Safety Report 10035032 (Version 1)
Quarter: 2014Q1

REPORT INFORMATION
  Report Type: Spontaneous
  Country: US (occurrence: None)
  Receive Date: 20140306
  Receipt Date: 20140306
  Transmission Date: 20141002
  Serious: Yes (Other)
  Sender: FDA-Public Use
  Company Number: 163-21880-13011859

PATIENT
  Age: 56 Year
  Sex: Male

DRUGS (8)
  1. REVLIMID (LENALIDOMIDE) (10 MILLIGRAM, CAPSULES) [Suspect]
     Indication: PLASMA CELL MYELOMA
     Route: 048
     Dates: start: 201009, end: 2010
  2. VELCADE (BORTEZOMIB) [Concomitant]
  3. DEXAMETHASONE (DEXAMETHASONE) [Concomitant]
  4. DILAUDID (HYDROMORPHONE HYDROCHLORIDE) [Concomitant]
  5. HYDROCODONE (HYDROCODONE) [Concomitant]
  6. MEGACE ES (MEGESTROL ACETATE) [Concomitant]
  7. COMPAZINE (PROCHLORPERAZINE EDISYLATE) [Concomitant]
  8. IMODIUM (LOPERAMIDE HYDROCHLORIDE) (LOPERAMIDE) [Concomitant]

REACTIONS (1)
  - Thrombocytopenia [None]
